FAERS Safety Report 6936797-6 (Version None)
Quarter: 2010Q3

REPORT INFORMATION
  Report Type: 
  Country: None (occurrence: None)
  Receive Date: 20100823
  Receipt Date: 20100813
  Transmission Date: 20110219
  Serious: Yes (Other)
  Sender: FDA-Public Use
  Company Number: KR-JNJFOC-20100806826

PATIENT

DRUGS (2)
  1. TOPIRAMATE [Suspect]
     Indication: CONVULSION
     Dosage: THE DOSE WAS STARTED WITH 50 MG/DAY EXCEPT FOR TWO WHO WERE STARTED AT 25 MG/DAY.
     Route: 065
  2. ANTI-EPILEPTIC DRUG UNSPECIFIED [Suspect]
     Indication: TEMPORAL LOBE EPILEPSY
     Route: 065

REACTIONS (1)
  - COGNITIVE DISORDER [None]
